FAERS Safety Report 10041453 (Version 1)
Quarter: 2014Q1

REPORT INFORMATION
  Report Type: Spontaneous
  Country: US (occurrence: US)
  Receive Date: 20140327
  Receipt Date: 20140327
  Transmission Date: 20141002
  Serious: Yes (Hospitalization)
  Sender: FDA-Public Use
  Company Number: US-FRI-1000065770

PATIENT
  Age: 18 Year
  Sex: Male

DRUGS (1)
  1. VIIBRYD [Suspect]

REACTIONS (1)
  - Suicidal ideation [Unknown]
